FAERS Safety Report 9227332 (Version 1)
Quarter: 2013Q1

REPORT INFORMATION
  Report Type: Spontaneous
  Country: US (occurrence: None)
  Receive Date: 20121012
  Receipt Date: 20121012
  Transmission Date: 20140127
  Serious: Yes (Hospitalization)
  Sender: FDA-Public Use
  Company Number: 1000025159

PATIENT
  Age: 50 Year
  Sex: Female

DRUGS (7)
  1. LEXAPRO (ESCITALOPRAM OXALATE) (20 MILLIGRAM, TABLETS) [Suspect]
     Indication: DEPRESSION
     Dosage: 20MG (20MG, 1 IN 1 D), ORAL
     Route: 048
     Dates: start: 2009
  2. LEXAPRO (ESCITALOPRAM OXALATE) (20 MILLIGRAM, TABLETS) [Suspect]
     Indication: DEPRESSION
     Dosage: 30MG (30MG, 1 IN 1 D), ORAL
     Route: 048
     Dates: end: 20111029
  3. DEPAKOTE (VALPROATE SEMISODIUM) [Concomitant]
  4. KLONOPIN (CLONAZEPAM) (TABLETS) [Concomitant]
  5. AMBIEN (ZOLPIDEM TARTRATE) [Suspect]
  6. SLEEPING PILLS NOS (SLEEPING PILLS NOS) [Suspect]
  7. UNSPECIFIED MEDICATIONS NOS (UNSPECIFIED MEDICATIONS NOS) [Suspect]

REACTIONS (8)
  - Suicide attempt [None]
  - Overdose [None]
  - Depression [None]
  - Irritability [None]
  - Paraesthesia [None]
  - Crying [None]
  - Agitation [None]
  - Overdose [None]
